FAERS Safety Report 7214620-2 (Version None)
Quarter: 2011Q1

REPORT INFORMATION
  Report Type: 
  Country: None (occurrence: None)
  Receive Date: 20110107
  Receipt Date: 20101230
  Transmission Date: 20110831
  Serious: Yes (Hospitalization)
  Sender: FDA-Public Use
  Company Number: ES-JNJFOC-20110100121

PATIENT
  Age: 43 Year
  Sex: Male
  Weight: 69 kg

DRUGS (5)
  1. OMEPRAZOLE [Concomitant]
     Route: 048
  2. REMICADE [Suspect]
     Indication: ANKYLOSING SPONDYLITIS
     Route: 042
  3. METHOTREXATE [Suspect]
     Indication: ANKYLOSING SPONDYLITIS
     Route: 048
  4. ACFOL [Concomitant]
     Indication: ANKYLOSING SPONDYLITIS
     Route: 048
  5. INACID [Concomitant]
     Indication: ANKYLOSING SPONDYLITIS
     Dosage: 2 TIMES
     Route: 048

REACTIONS (1)
  - PNEUMONIA LEGIONELLA [None]
